FAERS Safety Report 11189217 (Version 1)
Quarter: 2015Q2

REPORT INFORMATION
  Report Type: Spontaneous
  Country: KR (occurrence: None)
  Receive Date: 20150611
  Receipt Date: 20150611
  Transmission Date: 20150821
  Serious: Yes (Hospitalization, Other)
  Sender: FDA-Public Use
  Company Number: 2015050059

PATIENT
  Age: 69 Year
  Sex: Female
  Weight: 48 kg

DRUGS (5)
  1. ATORVASTATIN (ATORVASTATIN) [Concomitant]
     Active Substance: ATORVASTATIN
  2. METFORMIN [Concomitant]
     Active Substance: METFORMIN HYDROCHLORIDE
  3. POLYETHYLENE GLYCOL [Suspect]
     Active Substance: POLYETHYLENE GLYCOLS
     Indication: COLONOSCOPY
     Route: 048
  4. GLIMEPIRIDE (GLIMEPRIDE) [Concomitant]
  5. SITAGLIPTIN (SITAGLIPTIN) [Concomitant]
     Active Substance: SITAGLIPTIN

REACTIONS (3)
  - Generalised tonic-clonic seizure [None]
  - Blood pressure systolic increased [None]
  - Inappropriate antidiuretic hormone secretion [None]
